FAERS Safety Report 6960162-9 (Version None)
Quarter: 2010Q3

REPORT INFORMATION
  Report Type: 
  Country: None (occurrence: None)
  Receive Date: 20100901
  Receipt Date: 20100716
  Transmission Date: 20110219
  Serious: Yes (Hospitalization, Other)
  Sender: FDA-Public Use
  Company Number: FR-BAYER-201032988GPV

PATIENT
  Age: 57 Year
  Sex: Male

DRUGS (22)
  1. SORAFENIB [Suspect]
     Indication: HEPATIC NEOPLASM MALIGNANT
     Dosage: TOTAL DAILY DOSE: 800 MG  UNIT DOSE: 200 MG
     Route: 048
     Dates: start: 20100311, end: 20100714
  2. ERLOTINIB OR PLACEBO [Suspect]
     Indication: HEPATIC NEOPLASM MALIGNANT
  3. AVLOCARDYL [Concomitant]
     Indication: VARICES OESOPHAGEAL
     Dates: start: 20090821
  4. NEXIUM [Concomitant]
     Indication: GASTROOESOPHAGEAL REFLUX DISEASE
     Dates: start: 20100701
  5. STILNOX [Concomitant]
     Indication: INSOMNIA
     Dates: start: 20100701
  6. STILNOX [Concomitant]
     Dates: start: 20091005, end: 20100416
  7. KARDEGIC [Concomitant]
     Indication: ARTERIAL OCCLUSIVE DISEASE
     Dates: start: 20100601
  8. KARDEGIC [Concomitant]
  9. BIPRETERAX [Concomitant]
     Indication: HYPERTENSION
     Dates: start: 20100601
  10. BIPRETERAX [Concomitant]
     Dates: start: 20100315, end: 20100417
  11. HYPERIUM [Concomitant]
     Indication: HYPERTENSION
     Dates: start: 20100501, end: 20100601
  12. EFFERALGAN CODEINE [Concomitant]
     Indication: PAIN
     Dates: end: 20100416
  13. PERINDOPRIL ERBUMINE [Concomitant]
     Indication: HYPERTENSION
     Dates: start: 20100417
  14. RIVOTRIL [Concomitant]
     Indication: ANXIETY
     Dates: start: 20100323, end: 20100416
  15. MEPROZINE [Concomitant]
     Indication: INSOMNIA
     Dates: start: 20100416
  16. KLIPAL [Concomitant]
     Indication: PREMEDICATION
  17. TOPREC [Concomitant]
     Indication: PREMEDICATION
     Dates: start: 20100601, end: 20100621
  18. TRAMADOL HCL [Concomitant]
     Indication: PREMEDICATION
     Dates: start: 20100617, end: 20100618
  19. PERFALGAN [Concomitant]
     Indication: PREMEDICATION
     Dates: start: 20100617, end: 20100618
  20. TAHOR [Concomitant]
     Indication: DYSLIPIDAEMIA
     Dates: start: 20100619
  21. BUFLOMEDIL [Concomitant]
     Indication: ARTERIAL OCCLUSIVE DISEASE
     Dates: start: 20100601
  22. NICOBION [Concomitant]
     Indication: HYPOVITAMINOSIS
     Dates: start: 20100601

REACTIONS (3)
  - AORTIC BYPASS [None]
  - PERIPHERAL ISCHAEMIA [None]
  - TOE AMPUTATION [None]
